FAERS Safety Report 22153263 (Version 1)
Quarter: 2023Q1

REPORT INFORMATION
  Report Type: Report from Study
  Country: US (occurrence: US)
  Receive Date: 20230329
  Receipt Date: 20230329
  Transmission Date: 20230417
  Serious: Yes (Death, Other)
  Sender: FDA-Public Use
  Company Number: US-GILEAD-2023-0622108

PATIENT
  Age: 45 Year
  Sex: Female

DRUGS (1)
  1. SACITUZUMAB GOVITECAN-HZIY [Suspect]
     Active Substance: SACITUZUMAB GOVITECAN-HZIY
     Indication: Neoplasm malignant
     Dosage: 730 MG, ONCE WEEKLY ON DAYS ONE AND EIGHT OF A CONTINUOUS 21 DAY TREATMENT.
     Route: 042
     Dates: start: 20221227

REACTIONS (1)
  - Death [Fatal]
